FAERS Safety Report 16852613 (Version 3)
Quarter: 2020Q1

REPORT INFORMATION
  Report Type: Spontaneous
  Country: US (occurrence: US)
  Receive Date: 20190925
  Receipt Date: 20200123
  Transmission Date: 20200409
  Serious: No
  Sender: FDA-Public Use
  Company Number: US-SA-2019SA263880

PATIENT
  Age: 27 Year
  Sex: Female

DRUGS (8)
  1. FLUTICASONE. [Concomitant]
     Active Substance: FLUTICASONE
  2. NUVARING [Concomitant]
     Active Substance: ETHINYL ESTRADIOL\ETONOGESTREL
     Dosage: UNK
  3. OLOPATADINE. [Concomitant]
     Active Substance: OLOPATADINE
     Dosage: UNK
  4. PIMECROLIMUS. [Concomitant]
     Active Substance: PIMECROLIMUS
  5. DUPIXENT [Suspect]
     Active Substance: DUPILUMAB
     Dosage: 300 MG, QOW
     Route: 058
     Dates: start: 201909
  6. TRIAMCINOLONE [Concomitant]
     Active Substance: TRIAMCINOLONE
  7. DUPIXENT [Suspect]
     Active Substance: DUPILUMAB
     Indication: DERMATITIS ATOPIC
     Dosage: 600 MG, 1X
     Route: 058
     Dates: start: 20190906, end: 20190906
  8. EPINASTINE. [Concomitant]
     Active Substance: EPINASTINE HYDROCHLORIDE

REACTIONS (4)
  - Memory impairment [Not Recovered/Not Resolved]
  - Product dose omission [Not Recovered/Not Resolved]
  - Rash [Not Recovered/Not Resolved]
  - Dermatitis atopic [Not Recovered/Not Resolved]

NARRATIVE: CASE EVENT DATE: 201909
